FAERS Safety Report 25158980 (Version 1)
Quarter: 2025Q2

REPORT INFORMATION
  Report Type: Spontaneous
  Country: IT (occurrence: IT)
  Receive Date: 20250404
  Receipt Date: 20250404
  Transmission Date: 20250716
  Serious: Yes (Life-Threatening, Hospitalization, Other)
  Sender: ACCORD
  Company Number: None

PATIENT
  Age: 57 Year
  Sex: Female

DRUGS (4)
  1. QUETIAPINE [Suspect]
     Active Substance: QUETIAPINE
     Indication: Product used for unknown indication
     Dosage: THE PATIENT TOOK 10 TABLETS OF 25 MG (TOTAL 250 MG)
     Dates: start: 20221127, end: 20221127
  2. ESCITALOPRAM [Suspect]
     Active Substance: ESCITALOPRAM OXALATE
     Indication: Product used for unknown indication
     Dosage: THE PATIENT TOOK 22 TABLETS OF 20 MG (TOTAL 440 MG)
     Dates: start: 20221127, end: 20221127
  3. IBUPROFEN [Suspect]
     Active Substance: IBUPROFEN
     Indication: Product used for unknown indication
     Dosage: 10 TABLETS OF 400 MG (TOTAL 4G)
     Dates: start: 20221127, end: 20221127
  4. FLURAZEPAM [Suspect]
     Active Substance: FLURAZEPAM HYDROCHLORIDE
     Indication: Product used for unknown indication
     Dosage: THE PATIENT TOOK 30 CAPSULES OF 15 MG (TOTAL 450 MG)
     Dates: start: 20221127, end: 20221127

REACTIONS (3)
  - Drug abuse [Recovered/Resolved]
  - Sopor [Recovered/Resolved]
  - Intentional self-injury [Recovered/Resolved]

NARRATIVE: CASE EVENT DATE: 20221127
